FAERS Safety Report 7540849-X (Version None)
Quarter: 2011Q2

REPORT INFORMATION
  Report Type: 
  Country: None (occurrence: None)
  Receive Date: 20110603
  Receipt Date: 20110518
  Transmission Date: 20111010
  Serious: Yes (Hospitalization)
  Sender: FDA-Public Use
  Company Number: 2011001846

PATIENT
  Age: 80 Year
  Sex: Male

DRUGS (15)
  1. PLETAL [Concomitant]
  2. MUCOSTA (REBAMIPIDE) [Concomitant]
  3. LASIX [Concomitant]
  4. DIOVAN [Concomitant]
  5. WARFARIN SODIUM [Concomitant]
  6. ADVAIR HFA [Concomitant]
  7. CONIEL (BENIDIPINE HYDROCHLORIDE) [Concomitant]
  8. UNIPHYL [Concomitant]
  9. RESTAMIN (DIPHENHYDRAMINE) [Concomitant]
  10. TARCEVA [Suspect]
     Indication: NON-SMALL CELL LUNG CANCER
     Dosage: 150 MG, UID/QD, ORAL 100 MG, UID/QD, ORAL 50 MG, UID/QD, ORAL  ORAL
     Route: 048
     Dates: start: 20100616, end: 20100624
  11. TARCEVA [Suspect]
     Indication: NON-SMALL CELL LUNG CANCER
     Dosage: 150 MG, UID/QD, ORAL 100 MG, UID/QD, ORAL 50 MG, UID/QD, ORAL  ORAL
     Route: 048
     Dates: start: 20100706, end: 20110222
  12. TARCEVA [Suspect]
     Indication: NON-SMALL CELL LUNG CANCER
     Dosage: 150 MG, UID/QD, ORAL 100 MG, UID/QD, ORAL 50 MG, UID/QD, ORAL  ORAL
     Route: 048
     Dates: start: 20100629, end: 20100702
  13. TARCEVA [Suspect]
     Indication: NON-SMALL CELL LUNG CANCER
     Dosage: 150 MG, UID/QD, ORAL 100 MG, UID/QD, ORAL 50 MG, UID/QD, ORAL  ORAL
     Route: 048
     Dates: start: 20110302, end: 20110417
  14. LAC-B (LACTOBACILLUS BIFIDUS, LYOPHILIZED) [Concomitant]
  15. MUCOSOLVAN L (AMBROXOL) [Concomitant]

REACTIONS (9)
  - STOMATITIS [None]
  - MALAISE [None]
  - PYREXIA [None]
  - LYMPHANGIOSIS CARCINOMATOSA [None]
  - RESPIRATORY TRACT INFECTION [None]
  - HYPOXIA [None]
  - ASTHMA [None]
  - PLEURAL EFFUSION [None]
  - NEOPLASM PROGRESSION [None]
